FAERS Safety Report 13927043 (Version 1)
Quarter: 2017Q3

REPORT INFORMATION
  Report Type: Spontaneous
  Country: US (occurrence: US)
  Receive Date: 20170831
  Receipt Date: 20170831
  Transmission Date: 20171127
  Serious: No
  Sender: FDA-Public Use
  Company Number: US-FERRINGPH-2017FE03220

PATIENT
  Age: 61 Year
  Sex: Female

DRUGS (1)
  1. PREPOPIK [Suspect]
     Active Substance: ANHYDROUS CITRIC ACID\MAGNESIUM OXIDE\SODIUM PICOSULFATE
     Indication: CONSTIPATION
     Dosage: UNK
     Route: 065
     Dates: start: 201706

REACTIONS (2)
  - Product use in unapproved indication [Unknown]
  - Rash macular [Unknown]

NARRATIVE: CASE EVENT DATE: 201706
